FAERS Safety Report 7356437-4 (Version None)
Quarter: 2011Q1

REPORT INFORMATION
  Report Type: 
  Country: None (occurrence: None)
  Receive Date: 20110316
  Receipt Date: 20110125
  Transmission Date: 20110831
  Serious: No
  Sender: FDA-Public Use
  Company Number: US-BAYER-2011-017623

PATIENT
  Sex: Male

DRUGS (2)
  1. ALEVE (CAPLET) [Suspect]
     Indication: ANALGESIC THERAPY
     Route: 048
  2. ALEVE [Suspect]
     Indication: ANALGESIC THERAPY
     Dosage: DAILY, ONCE
     Route: 048
     Dates: start: 20110124

REACTIONS (2)
  - FEELING ABNORMAL [None]
  - NO ADVERSE EVENT [None]
